FAERS Safety Report 9111365 (Version 1)
Quarter: 2013Q1

REPORT INFORMATION
  Report Type: Spontaneous
  Country: US (occurrence: US)
  Receive Date: 20130219
  Receipt Date: 20130219
  Transmission Date: 20140127
  Serious: No
  Sender: FDA-Public Use
  Company Number: US-BRISTOL-MYERS SQUIBB COMPANY-16567372

PATIENT
  Age: 57 Year
  Sex: Female

DRUGS (8)
  1. ORENCIA [Suspect]
     Indication: RHEUMATOID ARTHRITIS
     Dosage: LAST INFUSION WAS ON 30APR2012?IM46955:EXP DT:OCT2014?3 VIALS
     Route: 042
     Dates: start: 20120430, end: 20120514
  2. KEPPRA [Concomitant]
     Dosage: 750MG AM + ALSO 1000MG PM
  3. TOPAMAX [Concomitant]
  4. LYRICA [Concomitant]
  5. NORTRIPTYLINE [Concomitant]
  6. METHOTREXATE [Concomitant]
  7. PREDNISONE [Concomitant]
  8. SOMA [Concomitant]

REACTIONS (2)
  - Migraine [Recovered/Resolved]
  - Fatigue [Unknown]
